FAERS Safety Report 8076027-8 (Version None)
Quarter: 2012Q1

REPORT INFORMATION
  Report Type: 
  Country: None (occurrence: None)
  Receive Date: 20120127
  Receipt Date: 20110506
  Transmission Date: 20120608
  Serious: No
  Sender: FDA-Public Use
  Company Number: US-GLAXOSMITHKLINE-A0927024A

PATIENT
  Age: 40 Year
  Sex: Male

DRUGS (3)
  1. ATARAX [Suspect]
     Route: 065
  2. TRAZODONE HCL [Suspect]
     Route: 065
  3. WELLBUTRIN [Suspect]
     Indication: PRODUCT USED FOR UNKNOWN INDICATION
     Route: 048

REACTIONS (4)
  - DYSPHAGIA [None]
  - BLISTER [None]
  - THROAT TIGHTNESS [None]
  - MEMORY IMPAIRMENT [None]
